FAERS Safety Report 8550064-9 (Version None)
Quarter: 2012Q3

REPORT INFORMATION
  Report Type: 
  Country: None (occurrence: None)
  Receive Date: 20120730
  Receipt Date: 20120723
  Transmission Date: 20120928
  Serious: Yes (Other)
  Sender: FDA-Public Use
  Company Number: US-PFIZER INC-2012147874

PATIENT
  Sex: Female

DRUGS (3)
  1. PREMPRO [Suspect]
     Indication: MENOPAUSAL SYMPTOMS
     Dosage: 1 DF, 1X/DAY
     Route: 048
     Dates: start: 20090309, end: 20101101
  2. PREMPRO [Suspect]
     Indication: HOT FLUSH
  3. PREMPRO [Suspect]
     Indication: NIGHT SWEATS

REACTIONS (1)
  - BREAST CANCER [None]
